FAERS Safety Report 16929225 (Version 1)
Quarter: 2019Q4

REPORT INFORMATION
  Report Type: Spontaneous
  Country: CA (occurrence: CA)
  Receive Date: 20191017
  Receipt Date: 20191017
  Transmission Date: 20200122
  Serious: Yes (Other)
  Sender: FDA-Public Use
  Company Number: CA-TEVA-2019-CA-1121198

PATIENT
  Age: 58 Year
  Sex: Male

DRUGS (1)
  1. TEVA-CYCLOSPORINE [Suspect]
     Active Substance: CYCLOSPORINE
     Indication: DRY EYE
     Dosage: DIN: 02462486, 1 DROP IN EACH EYE BID
     Dates: start: 20190827, end: 20190916

REACTIONS (5)
  - Vision blurred [Unknown]
  - Ocular surface disease [Unknown]
  - Eye inflammation [Unknown]
  - Eye irritation [Unknown]
  - Product substitution issue [Unknown]

NARRATIVE: CASE EVENT DATE: 20190908
